FAERS Safety Report 10528128 (Version 1)
Quarter: 2014Q4

REPORT INFORMATION
  Report Type: Spontaneous
  Country: US (occurrence: None)
  Receive Date: 20141017
  Receipt Date: 20141017
  Transmission Date: 20150528
  Serious: No
  Sender: FDA-Public Use
  Company Number: None

PATIENT
  Age: 39 Year
  Sex: Male
  Weight: 92.99 kg

DRUGS (1)
  1. LYRICA [Suspect]
     Active Substance: PREGABALIN
     Indication: NEURALGIA
     Dosage: TAKEN BY MOUTH
     Dates: start: 20141012, end: 20141015

REACTIONS (2)
  - Anal haemorrhage [None]
  - Neuralgia [None]

NARRATIVE: CASE EVENT DATE: 20141015
